FAERS Safety Report 11859599 (Version 2)
Quarter: 2016Q1

REPORT INFORMATION
  Report Type: Report from Study
  Country: CA (occurrence: CA)
  Receive Date: 20151221
  Receipt Date: 20160111
  Transmission Date: 20160526
  Serious: Yes (Other)
  Sender: FDA-Public Use
  Company Number: CA-JNJFOC-20151124211

PATIENT
  Sex: Female

DRUGS (1)
  1. REMICADE [Suspect]
     Active Substance: INFLIXIMAB
     Indication: RHEUMATOID ARTHRITIS
     Route: 042

REACTIONS (4)
  - Neoplasm malignant [Unknown]
  - Lung neoplasm malignant [Unknown]
  - Nephrolithiasis [Not Recovered/Not Resolved]
  - Ureterolithiasis [Not Recovered/Not Resolved]
